FAERS Safety Report 25871570 (Version 1)
Quarter: 2025Q4

REPORT INFORMATION
  Report Type: Spontaneous
  Country: EU (occurrence: EU)
  Receive Date: 20251001
  Receipt Date: 20251001
  Transmission Date: 20260117
  Serious: Yes (Death, Hospitalization, Other)
  Sender: MERCK SHARP & DOHME LLC
  Company Number: None

PATIENT
  Age: 79 Year
  Sex: Male
  Weight: 98 kg

DRUGS (2)
  1. KEYTRUDA [Suspect]
     Active Substance: PEMBROLIZUMAB
     Indication: Transitional cell carcinoma
     Dosage: 200 MG WITH UNKNOWN INTERVALS
     Route: 042
     Dates: start: 20250701, end: 20250722
  2. PADCEV [Suspect]
     Active Substance: ENFORTUMAB VEDOTIN-EJFV
     Indication: Transitional cell carcinoma
     Dosage: DOSAGE: 122MG (1.25MG/KG) WITH UNKNOWN INTERVALS.
     Route: 042
     Dates: start: 20250722, end: 20250729

REACTIONS (3)
  - Immune-mediated lung disease [Fatal]
  - Immune-mediated enterocolitis [Recovered/Resolved]
  - Respiratory failure [Fatal]

NARRATIVE: CASE EVENT DATE: 20250729
